FAERS Safety Report 11517403 (Version 1)
Quarter: 2015Q3

REPORT INFORMATION
  Report Type: Spontaneous
  Country: None (occurrence: None)
  Receive Date: 20150916
  Receipt Date: 20150916
  Transmission Date: 20151125
  Serious: Yes (Other)
  Sender: FDA-Public Use
  Company Number: None

PATIENT
  Age: 32 Year
  Sex: Male
  Weight: 83 kg

DRUGS (1)
  1. PROPECIA [Suspect]
     Active Substance: FINASTERIDE
     Indication: ALOPECIA
     Dosage: 1 ONCE DAILY TAKEN BY MOUTH
     Route: 048
     Dates: start: 20050801, end: 20130501

REACTIONS (9)
  - Dry skin [None]
  - Libido decreased [None]
  - Erectile dysfunction [None]
  - Depression [None]
  - Orgasmic sensation decreased [None]
  - Loss of libido [None]
  - Panic attack [None]
  - Suicidal ideation [None]
  - Cognitive disorder [None]

NARRATIVE: CASE EVENT DATE: 20130501
